FAERS Safety Report 9913097 (Version 1)
Quarter: 2014Q1

REPORT INFORMATION
  Report Type: Spontaneous
  Country: FR (occurrence: None)
  Receive Date: 20140212
  Receipt Date: 20140212
  Transmission Date: 20141002
  Serious: Yes (Hospitalization)
  Sender: FDA-Public Use
  Company Number: 2014035409

PATIENT
  Sex: Male

DRUGS (3)
  1. FRAGMIN [Suspect]
     Dates: start: 20140115, end: 20140130
  2. DAFALGAN (PARACETAMOL) [Concomitant]
  3. TOPALGIC (TRAMADOL HYDROCHLORIDE) [Concomitant]

REACTIONS (2)
  - Toxic skin eruption [None]
  - Skin plaque [None]
